FAERS Safety Report 9785919 (Version 1)
Quarter: 2013Q4

REPORT INFORMATION
  Report Type: Spontaneous
  Country: FR (occurrence: FR)
  Receive Date: 20131227
  Receipt Date: 20131227
  Transmission Date: 20140711
  Serious: Yes (Death, Hospitalization, Other)
  Sender: FDA-Public Use
  Company Number: FR-IPSEN BIOPHARMACEUTICALS, INC.-2013-5807

PATIENT
  Age: 64 Year
  Sex: Male

DRUGS (1)
  1. BOTULINUM TOXIN TYPE A NOS [Suspect]
     Indication: OESOPHAGEAL SPASM
     Dosage: NOT REPORTED
     Route: 065

REACTIONS (4)
  - Mycotic aneurysm [Fatal]
  - Shock haemorrhagic [Fatal]
  - Mediastinitis [Recovering/Resolving]
  - Mediastinal abscess [Recovering/Resolving]
